FAERS Safety Report 6051212-5 (Version None)
Quarter: 2009Q1

REPORT INFORMATION
  Report Type: 
  Country: None (occurrence: None)
  Receive Date: 20090126
  Receipt Date: 20090121
  Transmission Date: 20090719
  Serious: Yes (Life-Threatening, Hospitalization)
  Sender: FDA-Public Use
  Company Number: US-KINGPHARMUSA00001-K200900054

PATIENT
  Age: 73 Year
  Sex: Male

DRUGS (5)
  1. ALTACE [Suspect]
     Indication: HYPERTENSION
     Dosage: 2.5 MG, QD
     Route: 048
  2. BISOPROLOL FUMARATE [Concomitant]
     Indication: HYPERTENSION
     Dosage: 47.5 MG, UNK
     Route: 048
  3. BISOPROLOL FUMARATE [Concomitant]
     Indication: CARDIAC DISORDER
  4. ZOCOR [Concomitant]
     Indication: HYPERCHOLESTEROLAEMIA
     Dosage: 20 MG, UNK
     Route: 048
  5. UNACID PD [Concomitant]
     Indication: PNEUMONIA
     Dosage: 1.5 G, UNK
     Route: 048

REACTIONS (2)
  - ANGIOEDEMA [None]
  - PNEUMONIA [None]
